APPROVED DRUG PRODUCT: VANCOMYCIN HYDROCHLORIDE
Active Ingredient: VANCOMYCIN HYDROCHLORIDE
Strength: EQ 5GM BASE/VIAL
Dosage Form/Route: INJECTABLE;INJECTION
Application: A202274 | Product #001
Applicant: AVET LIFESCIENCES LTD
Approved: Oct 31, 2013 | RLD: No | RS: No | Type: DISCN